FAERS Safety Report 7288125-7 (Version None)
Quarter: 2011Q1

REPORT INFORMATION
  Report Type: 
  Country: None (occurrence: None)
  Receive Date: 20110211
  Receipt Date: 20110203
  Transmission Date: 20110831
  Serious: Yes (Other)
  Sender: FDA-Public Use
  Company Number: US-JNJFOC-20100905418

PATIENT
  Sex: Female

DRUGS (2)
  1. LEVAQUIN [Suspect]
     Indication: CHOLECYSTITIS INFECTIVE
     Route: 048
  2. LEVAQUIN [Suspect]
     Indication: RESPIRATORY TRACT INFECTION
     Route: 048

REACTIONS (4)
  - MENISCUS LESION [None]
  - ROTATOR CUFF SYNDROME [None]
  - TENDON RUPTURE [None]
  - TENDONITIS [None]
